FAERS Safety Report 15290108 (Version 1)
Quarter: 2018Q3

REPORT INFORMATION
  Report Type: Spontaneous
  Country: ES (occurrence: ES)
  Receive Date: 20180804
  Receipt Date: 20180804
  Transmission Date: 20181010
  Serious: Yes (Disabling)
  Sender: FDA-Public Use
  Company Number: None

PATIENT
  Age: 41 Year
  Sex: Female
  Weight: 52 kg

DRUGS (4)
  1. IBUPROFEN. [Concomitant]
     Active Substance: IBUPROFEN
  2. LAMICTAL [Suspect]
     Active Substance: LAMOTRIGINE
     Indication: MIGRAINE
     Route: 048
     Dates: start: 20180120, end: 20180227
  3. TRYPTIZOL 10 MG (AMITRIPTYLINE) [Concomitant]
  4. RILAST TURBUHALER [Concomitant]

REACTIONS (10)
  - Multiple sclerosis [None]
  - Anxiety [None]
  - Altered visual depth perception [None]
  - Dyschromatopsia [None]
  - Aura [None]
  - Sedation [None]
  - Feeling abnormal [None]
  - Tunnel vision [None]
  - Headache [None]
  - Paraesthesia [None]

NARRATIVE: CASE EVENT DATE: 20180220
